FAERS Safety Report 6282364-X (Version None)
Quarter: 2009Q3

REPORT INFORMATION
  Report Type: 
  Country: None (occurrence: None)
  Receive Date: 20090724
  Receipt Date: 20090708
  Transmission Date: 20100115
  Serious: No
  Sender: FDA-Public Use
  Company Number: US-B.I. PHARMACEUTICALS,INC./RIDGEFIELD-2009-BP-08515BP

PATIENT
  Age: 82 Year
  Sex: Male

DRUGS (2)
  1. FLOMAX [Suspect]
     Route: 048
  2. HEART MEDICATION [Concomitant]
     Indication: ATRIAL FIBRILLATION

REACTIONS (5)
  - ACCIDENTAL OVERDOSE [None]
  - NOCTURNAL EMISSION [None]
  - PENILE SIZE REDUCED [None]
  - TESTICULAR ATROPHY [None]
  - URINARY TRACT DISORDER [None]
